FAERS Safety Report 24255141 (Version 1)
Quarter: 2024Q3

REPORT INFORMATION
  Report Type: Spontaneous
  Country: US (occurrence: None)
  Receive Date: 20240826
  Receipt Date: 20240826
  Transmission Date: 20241017
  Serious: Yes (unspecified)
  Sender: Public
  Company Number: None

PATIENT
  Age: 42 Year
  Sex: Female
  Weight: 71.67 kg

DRUGS (1)
  1. MONOFERRIC [Suspect]
     Active Substance: FERRIC DERISOMALTOSE
     Indication: Anaemia
     Dosage: 1000MG ONCE IV
     Route: 042
     Dates: start: 20240826, end: 20240826

REACTIONS (4)
  - Dizziness [None]
  - Hyperhidrosis [None]
  - Abdominal pain upper [None]
  - Pallor [None]

NARRATIVE: CASE EVENT DATE: 20240826
